FAERS Safety Report 7293138-5 (Version None)
Quarter: 2011Q1

REPORT INFORMATION
  Report Type: 
  Country: None (occurrence: None)
  Receive Date: 20110210
  Receipt Date: 20110210
  Transmission Date: 20110831
  Serious: Yes (Hospitalization)
  Sender: FDA-Public Use
  Company Number: None

PATIENT
  Sex: Male
  Weight: 18.5 kg

DRUGS (4)
  1. INTUIV -EXTENDED RELEASE GUANF-1MG SHIRE [Suspect]
     Indication: ATTENTION DEFICIT/HYPERACTIVITY DISORDER
     Dosage: 1 MG ONCE A NIGHT HS PO
     Route: 048
     Dates: start: 20101214, end: 20101215
  2. INTUIV -EXTENDED RELEASE GUANF-1MG SHIRE [Suspect]
     Indication: ASPERGER'S DISORDER
     Dosage: 1 MG ONCE A NIGHT HS PO
     Route: 048
     Dates: start: 20101214, end: 20101215
  3. INTUIV -EXTENDED RELEASE GUANF-1MG SHIRE [Suspect]
     Indication: ATTENTION DEFICIT/HYPERACTIVITY DISORDER
     Dosage: 1 MG ONCE A NIGHT HS PO
     Route: 048
     Dates: start: 20101117, end: 20101212
  4. INTUIV -EXTENDED RELEASE GUANF-1MG SHIRE [Suspect]
     Indication: ASPERGER'S DISORDER
     Dosage: 1 MG ONCE A NIGHT HS PO
     Route: 048
     Dates: start: 20101117, end: 20101212

REACTIONS (3)
  - SOMNOLENCE [None]
  - ATRIOVENTRICULAR BLOCK FIRST DEGREE [None]
  - UNRESPONSIVE TO STIMULI [None]
